FAERS Safety Report 5056852-8 (Version None)
Quarter: 2006Q3

REPORT INFORMATION
  Report Type: 
  Country: None (occurrence: None)
  Receive Date: 20060721
  Receipt Date: 20060609
  Transmission Date: 20061208
  Serious: Yes (Death)
  Sender: FDA-Public Use
  Company Number: US-ABBOTT-06P-163-0335652-00

PATIENT
  Age: 47 Year
  Sex: Male

DRUGS (12)
  1. RITONAVIR SOFT GELATIN CAPSULES [Suspect]
     Indication: HIV INFECTION
     Route: 048
     Dates: start: 20050622, end: 20050714
  2. RITONAVIR SOFT GELATIN CAPSULES [Suspect]
     Indication: MULTIPLE-DRUG RESISTANCE
  3. APTIVUS [Suspect]
     Indication: HIV INFECTION
     Route: 048
     Dates: start: 20050622, end: 20050714
  4. APTIVUS [Suspect]
     Indication: MULTIPLE-DRUG RESISTANCE
  5. CLINDAMYCIN [Concomitant]
     Indication: DRUG USE FOR UNKNOWN INDICATION
     Dates: start: 20010101, end: 20050714
  6. PYRIMETHAMINE TAB [Concomitant]
     Indication: DRUG USE FOR UNKNOWN INDICATION
     Dates: start: 20010101, end: 20010714
  7. DAPSONE [Concomitant]
     Indication: DRUG USE FOR UNKNOWN INDICATION
     Route: 048
     Dates: start: 20010101, end: 20050714
  8. ITRACONAZOLE [Concomitant]
     Indication: DRUG USE FOR UNKNOWN INDICATION
     Route: 048
     Dates: start: 20050507, end: 20050714
  9. ZITHROMAX [Concomitant]
     Indication: DRUG USE FOR UNKNOWN INDICATION
     Dates: start: 20050309, end: 20050714
  10. FOLINIC ACID [Concomitant]
     Indication: DRUG USE FOR UNKNOWN INDICATION
     Dates: start: 20010101, end: 20050714
  11. TRUVADA [Concomitant]
     Indication: DRUG USE FOR UNKNOWN INDICATION
     Dates: end: 20050714
  12. OXYCODONE HYDROCHLORIDE [Concomitant]
     Indication: PALLIATIVE CARE

REACTIONS (4)
  - DIET REFUSAL [None]
  - ENCEPHALOPATHY [None]
  - SUICIDAL IDEATION [None]
  - TOXOPLASMOSIS [None]
